FAERS Safety Report 8825912 (Version 2)
Quarter: 2013Q2

REPORT INFORMATION
  Report Type: Report from Study
  Country: CA (occurrence: CA)
  Receive Date: 20121005
  Receipt Date: 20130524
  Transmission Date: 20140414
  Serious: Yes (Hospitalization)
  Sender: FDA-Public Use
  Company Number: CA-ABBOTT-12P-028-0986805-00

PATIENT
  Age: 63 Year
  Sex: Male

DRUGS (9)
  1. HUMIRA [Suspect]
     Indication: CROHN^S DISEASE
     Route: 058
     Dates: start: 20090310, end: 20090310
  2. HUMIRA [Suspect]
     Dosage: WEEK TWO
     Route: 058
  3. HUMIRA [Suspect]
     Route: 058
     Dates: end: 20090606
  4. K CITRA 10 [Concomitant]
     Indication: CALCULUS URINARY
     Dates: start: 20090409, end: 20120828
  5. ALLOPURINOL [Concomitant]
     Indication: CALCULUS URINARY
     Dates: start: 20090409, end: 20120828
  6. ALLOPURINOL [Concomitant]
     Dates: end: 20090408
  7. REMICADE [Concomitant]
     Indication: PRODUCT USED FOR UNKNOWN INDICATION
  8. CORTICOSTEROIDS [Concomitant]
     Indication: PRODUCT USED FOR UNKNOWN INDICATION
  9. IMMUNOSUPPRESSANTS [Concomitant]
     Indication: PRODUCT USED FOR UNKNOWN INDICATION

REACTIONS (1)
  - Intestinal fistula [Unknown]
